FAERS Safety Report 4526362-2 (Version None)
Quarter: 2004Q4

REPORT INFORMATION
  Report Type: 
  Country: None (occurrence: None)
  Receive Date: 20041213
  Receipt Date: 20041126
  Transmission Date: 20050328
  Serious: Yes (Hospitalization)
  Sender: FDA-Public Use
  Company Number: 2004-123038-NL

PATIENT
  Age: 65 Year
  Sex: Female

DRUGS (2)
  1. DANAPAROID SODIUM [Suspect]
     Indication: HEPARIN-INDUCED THROMBOCYTOPENIA
  2. HEPARIN [Concomitant]

REACTIONS (6)
  - ATRIAL THROMBOSIS [None]
  - CATHETER RELATED COMPLICATION [None]
  - CHEST PAIN [None]
  - DISEASE RECURRENCE [None]
  - HEPARIN-INDUCED THROMBOCYTOPENIA [None]
  - PULMONARY EMBOLISM [None]
